FAERS Safety Report 20638508 (Version 1)
Quarter: 2022Q1

REPORT INFORMATION
  Report Type: Spontaneous
  Country: US (occurrence: US)
  Receive Date: 20220325
  Receipt Date: 20220325
  Transmission Date: 20220423
  Serious: No
  Sender: FDA-Public Use
  Company Number: US-ELI_LILLY_AND_COMPANY-US202203000191

PATIENT
  Sex: Female

DRUGS (2)
  1. TRULICITY [Suspect]
     Active Substance: DULAGLUTIDE
     Indication: Decreased appetite
     Dosage: 0.75 MG, UNKNOWN
     Route: 065
     Dates: start: 202007, end: 202107
  2. TRULICITY [Suspect]
     Active Substance: DULAGLUTIDE
     Indication: Weight decreased

REACTIONS (3)
  - Heavy menstrual bleeding [Recovered/Resolved]
  - Dyspepsia [Unknown]
  - Off label use [Unknown]
